FAERS Safety Report 8856060 (Version 1)
Quarter: 2012Q4

REPORT INFORMATION
  Report Type: Spontaneous
  Country: US (occurrence: None)
  Receive Date: 20121022
  Receipt Date: 20121022
  Transmission Date: 20130627
  Serious: Yes (Life-Threatening, Hospitalization)
  Sender: FDA-Public Use
  Company Number: None

PATIENT
  Age: 81 Year
  Sex: Female
  Weight: 95.8 kg

DRUGS (1)
  1. XARELTO [Suspect]
     Indication: VENOUS THROMBOEMBOLISM PROPHYLAXIS
     Dates: start: 20120817, end: 20120819

REACTIONS (1)
  - Pulmonary embolism [None]
